FAERS Safety Report 4501885-0 (Version None)
Quarter: 2004Q4

REPORT INFORMATION
  Report Type: 
  Country: None (occurrence: None)
  Receive Date: 20041109
  Receipt Date: 20041026
  Transmission Date: 20050328
  Serious: Yes (Other)
  Sender: FDA-Public Use
  Company Number: 2004241627CA

PATIENT
  Age: 30 Year
  Sex: Female
  Weight: 74.8 kg

DRUGS (2)
  1. DEPO-PROVERA [Suspect]
     Indication: CONTRACEPTION
     Dosage: SEE IMAGE
     Route: 030
     Dates: start: 20040127, end: 20040127
  2. DEPO-PROVERA [Suspect]
     Indication: CONTRACEPTION
     Dosage: SEE IMAGE
     Route: 030
     Dates: start: 20040921, end: 20040921

REACTIONS (3)
  - AMENORRHOEA [None]
  - CERVICAL DYSPLASIA [None]
  - METRORRHAGIA [None]
